FAERS Safety Report 5266737-X (Version None)
Quarter: 2007Q1

REPORT INFORMATION
  Report Type: 
  Country: None (occurrence: None)
  Receive Date: 20070315
  Receipt Date: 20070306
  Transmission Date: 20070707
  Serious: Yes (Other)
  Sender: FDA-Public Use
  Company Number: IE-ABBOTT-06P-229-0342445-00

PATIENT
  Age: 48 Year
  Sex: Female
  Weight: 32.234 kg

DRUGS (3)
  1. REDUCTIL 10MG [Suspect]
     Indication: DRUG USE FOR UNKNOWN INDICATION
  2. REDUCTIL 10MG [Suspect]
     Route: 048
     Dates: start: 20060627
  3. BISOPROLOL FUMARATE [Concomitant]
     Indication: BLOOD PRESSURE
     Route: 048
     Dates: start: 20040101

REACTIONS (1)
  - HYPOAESTHESIA ORAL [None]
